APPROVED DRUG PRODUCT: NITROFURANTOIN
Active Ingredient: NITROFURANTOIN, MACROCRYSTALLINE
Strength: 25MG
Dosage Form/Route: CAPSULE;ORAL
Application: A201722 | Product #001
Applicant: SUN PHARMACEUTICAL INDUSTRIES INC
Approved: Feb 16, 2016 | RLD: No | RS: No | Type: DISCN